FAERS Safety Report 7235411-2 (Version None)
Quarter: 2011Q1

REPORT INFORMATION
  Report Type: 
  Country: None (occurrence: None)
  Receive Date: 20110120
  Receipt Date: 20061130
  Transmission Date: 20110831
  Serious: Yes (Other)
  Sender: FDA-Public Use
  Company Number: CH-BAXTER-2011BH001416

PATIENT
  Sex: Male
  Weight: 1 kg

DRUGS (6)
  1. UROMITEXAN BAXTER [Suspect]
     Indication: DRUG EXPOSURE DURING PREGNANCY
     Dosage: DOSE UNIT:UNKNOWN
     Route: 064
     Dates: start: 20060215, end: 20060323
  2. METHYLPREDNISOLONE SODIUM SUCCINATE [Suspect]
     Indication: DRUG EXPOSURE DURING PREGNANCY
     Dosage: DOSE UNIT:UNKNOWN
     Route: 064
     Dates: start: 20060215, end: 20060323
  3. NEUPOGEN [Suspect]
     Indication: DRUG EXPOSURE DURING PREGNANCY
     Route: 064
     Dates: start: 20060222, end: 20060323
  4. HOLOXAN BAXTER [Suspect]
     Indication: DRUG EXPOSURE DURING PREGNANCY
     Route: 064
     Dates: start: 20060215, end: 20060323
  5. DOXORUBICIN GENERIC [Suspect]
     Indication: DRUG EXPOSURE DURING PREGNANCY
     Route: 064
     Dates: start: 20060215, end: 20060323
  6. ONDANSETRON [Suspect]
     Indication: DRUG EXPOSURE DURING PREGNANCY
     Route: 064
     Dates: start: 20060215, end: 20060323

REACTIONS (3)
  - FOETAL GROWTH RESTRICTION [None]
  - DRUG EXPOSURE DURING PREGNANCY [None]
  - PREMATURE BABY [None]
